FAERS Safety Report 16695657 (Version 1)
Quarter: 2019Q3

REPORT INFORMATION
  Report Type: Report from Study
  Country: GB (occurrence: GB)
  Receive Date: 20190813
  Receipt Date: 20190813
  Transmission Date: 20191004
  Serious: Yes (Other)
  Sender: FDA-Public Use
  Company Number: GB-ROCHE-2377233

PATIENT

DRUGS (5)
  1. FOLINIC ACID [Suspect]
     Active Substance: LEUCOVORIN
     Indication: COLORECTAL CANCER METASTATIC
     Route: 065
  2. CURCUMIN [Suspect]
     Active Substance: CURCUMIN
     Indication: COLORECTAL CANCER METASTATIC
     Route: 048
  3. BEVACIZUMAB. [Suspect]
     Active Substance: BEVACIZUMAB
     Indication: COLORECTAL CANCER METASTATIC
     Route: 065
  4. 5-FLUOROURACIL [FLUOROURACIL] [Suspect]
     Active Substance: FLUOROURACIL
     Indication: COLORECTAL CANCER METASTATIC
     Route: 065
  5. OXALIPLATIN. [Suspect]
     Active Substance: OXALIPLATIN
     Indication: COLORECTAL CANCER METASTATIC
     Route: 065

REACTIONS (17)
  - Diarrhoea [Unknown]
  - Fatigue [Unknown]
  - Nausea [Unknown]
  - Pain [Unknown]
  - Peripheral sensory neuropathy [Unknown]
  - Pyrexia [Unknown]
  - Platelet count decreased [Unknown]
  - Vomiting [Unknown]
  - Sepsis [Unknown]
  - Acute kidney injury [Unknown]
  - Blood alkaline phosphatase increased [Unknown]
  - Decreased appetite [Unknown]
  - Neutrophil count decreased [Unknown]
  - Weight decreased [Unknown]
  - Embolism [Unknown]
  - Abdominal pain [Unknown]
  - Skin infection [Unknown]
